FAERS Safety Report 17175012 (Version 1)
Quarter: 2019Q4

REPORT INFORMATION
  Report Type: Spontaneous
  Country: US (occurrence: US)
  Receive Date: 20191218
  Receipt Date: 20191218
  Transmission Date: 20200122
  Serious: Yes (Death)
  Sender: FDA-Public Use
  Company Number: None

PATIENT
  Age: 44 Year
  Sex: Male
  Weight: 108 kg

DRUGS (6)
  1. MEKTOVI [Suspect]
     Active Substance: BINIMETINIB
     Indication: RECTAL CANCER
     Route: 048
  2. LEXAPRO [Concomitant]
     Active Substance: ESCITALOPRAM OXALATE
  3. LISINOPRIL. [Concomitant]
     Active Substance: LISINOPRIL
  4. BRAFTOVI [Suspect]
     Active Substance: ENCORAFENIB
     Indication: RECTAL CANCER
     Route: 048
     Dates: start: 20190625, end: 20191211
  5. ELIQUIS [Concomitant]
     Active Substance: APIXABAN
  6. METOPROLOL. [Concomitant]
     Active Substance: METOPROLOL

REACTIONS (1)
  - Death [None]
